FAERS Safety Report 5265367-3 (Version None)
Quarter: 2007Q1

REPORT INFORMATION
  Report Type: 
  Country: None (occurrence: None)
  Receive Date: 20070314
  Receipt Date: 20070304
  Transmission Date: 20070707
  Serious: Yes (Other)
  Sender: FDA-Public Use
  Company Number: JP-ABBOTT-07P-087-0355918-00

PATIENT
  Sex: Female

DRUGS (13)
  1. AKINETON [Suspect]
     Indication: PARKINSONISM
     Route: 048
     Dates: end: 20061103
  2. AKINETON [Suspect]
     Dates: start: 20061104, end: 20061110
  3. AKINETON [Suspect]
     Dates: start: 20061111, end: 20061117
  4. LULLAN [Suspect]
     Indication: SCHIZOPHRENIA
     Route: 048
     Dates: start: 20050527, end: 20061103
  5. LULLAN [Suspect]
     Route: 048
     Dates: start: 20050507, end: 20050526
  6. LULLAN [Suspect]
     Route: 048
     Dates: start: 20061104
  7. HALOPERIDOL [Concomitant]
     Indication: SCHIZOPHRENIA
     Route: 048
     Dates: end: 20050506
  8. HALOPERIDOL [Concomitant]
     Route: 048
     Dates: start: 20050507, end: 20050526
  9. LEVOMEPROMAZINE MALEATE [Concomitant]
     Indication: SCHIZOPHRENIA
     Route: 005
     Dates: end: 20060915
  10. SENNA LEAF [Concomitant]
     Indication: CONSTIPATION
     Route: 048
  11. VOGLIBOSE [Concomitant]
     Indication: DIABETES MELLITUS
     Route: 048
     Dates: start: 19980601, end: 20060721
  12. GLIBENCLAMIDE [Concomitant]
     Indication: DIABETES MELLITUS
     Route: 048
     Dates: start: 19980601
  13. QUAZEPAM [Concomitant]
     Indication: INSOMNIA RELATED TO ANOTHER MENTAL CONDITION
     Route: 048
     Dates: start: 20060916

REACTIONS (4)
  - DIABETES INSIPIDUS [None]
  - INSOMNIA [None]
  - NOCTURIA [None]
  - POLLAKIURIA [None]
